FAERS Safety Report 9147991 (Version 1)
Quarter: 2013Q1

REPORT INFORMATION
  Report Type: Spontaneous
  Country: DE (occurrence: DE)
  Receive Date: 20130307
  Receipt Date: 20130307
  Transmission Date: 20140127
  Serious: Yes (Other)
  Sender: FDA-Public Use
  Company Number: DE-MYLANLABS-2013S1004249

PATIENT
  Age: 38 Year
  Sex: Female
  Weight: 45 kg

DRUGS (2)
  1. GABAPENTIN [Suspect]
     Indication: EPILEPSY
     Dosage: 300 [MG/D ]/ SINCE OCTOBER 2011; 100MG-100MG-100MG
     Route: 048
     Dates: start: 201110
  2. VIMPAT [Suspect]
     Indication: EPILEPSY
     Dosage: 200 [MG/D ]/ SINC JANNUARY 2011; 100MG-0-100MG
     Route: 048
     Dates: start: 201101

REACTIONS (2)
  - Exposure during pregnancy [Unknown]
  - Abortion spontaneous [Recovered/Resolved]
